FAERS Safety Report 19916776 (Version 1)
Quarter: 2021Q4

REPORT INFORMATION
  Report Type: Spontaneous
  Country: JP (occurrence: JP)
  Receive Date: 20211005
  Receipt Date: 20211005
  Transmission Date: 20220303
  Serious: Yes (Hospitalization)
  Sender: FDA-Public Use
  Company Number: JP-LUPIN PHARMACEUTICALS INC.-2021-18664

PATIENT
  Age: 50 Year
  Sex: Female

DRUGS (5)
  1. METHYLPREDNISOLONE [Suspect]
     Active Substance: METHYLPREDNISOLONE
     Indication: Still^s disease
     Dosage: 1000 MILLIGRAM, QD
     Route: 042
  2. BETAMETHASONE [Suspect]
     Active Substance: BETAMETHASONE
     Indication: Still^s disease
     Dosage: 6 MILLIGRAM, QD
     Route: 065
  3. PREDNISOLONE [Suspect]
     Active Substance: PREDNISOLONE
     Indication: Still^s disease
     Dosage: 30 MILLIGRAM, QD
     Route: 048
  4. PREDNISOLONE [Suspect]
     Active Substance: PREDNISOLONE
     Dosage: 60 MILLIGRAM, QD
     Route: 048
  5. TOCILIZUMAB [Concomitant]
     Active Substance: TOCILIZUMAB
     Indication: Still^s disease
     Dosage: 8 MILLIGRAM/KILOGRAM
     Route: 042

REACTIONS (1)
  - Therapy non-responder [Unknown]
